FAERS Safety Report 6001665-3 (Version None)
Quarter: 2008Q4

REPORT INFORMATION
  Report Type: 
  Country: None (occurrence: None)
  Receive Date: 20081215
  Receipt Date: 20081209
  Transmission Date: 20090506
  Serious: Yes (Hospitalization)
  Sender: FDA-Public Use
  Company Number: CH-ROXANE LABORATORIES, INC.-2008-RO-00388RO

PATIENT
  Age: 55 Year
  Sex: Male

DRUGS (10)
  1. ROPINIROLE [Suspect]
     Indication: PARKINSON'S DISEASE
     Dosage: 3MG
  2. LORAZEPAM [Suspect]
     Indication: HYPOMANIA
     Dosage: 3MG
  3. LORAZEPAM [Suspect]
     Indication: PATHOLOGICAL GAMBLING
  4. LORAZEPAM [Suspect]
     Indication: PERSONALITY DISORDER
  5. CABERGOLINE [Suspect]
     Indication: PARKINSON'S DISEASE
     Dosage: 4MG
  6. LEVODOPA [Suspect]
     Indication: PARKINSON'S DISEASE
     Dosage: 1830MG
  7. CLOZAPINE [Suspect]
     Indication: HYPOMANIA
     Dosage: 150MG
  8. CLOZAPINE [Suspect]
     Indication: PATHOLOGICAL GAMBLING
  9. CLOZAPINE [Suspect]
     Indication: PERSONALITY DISORDER
  10. MIRTAZAPINE [Concomitant]
     Indication: DEPRESSION
     Dosage: 30MG

REACTIONS (8)
  - ACTIVITIES OF DAILY LIVING IMPAIRED [None]
  - DEPRESSION [None]
  - DOPAMINE DYSREGULATION SYNDROME [None]
  - DRUG INEFFECTIVE [None]
  - FALL [None]
  - GAMBLING [None]
  - HYPOMANIA [None]
  - PERSONALITY DISORDER [None]
